FAERS Safety Report 19641498 (Version 4)
Quarter: 2021Q4

REPORT INFORMATION
  Report Type: Report from Study
  Country: US (occurrence: US)
  Receive Date: 20210730
  Receipt Date: 20211004
  Transmission Date: 20220303
  Serious: Yes (Death)
  Sender: FDA-Public Use
  Company Number: US-BIOGEN-2021BI01033603

PATIENT
  Age: 38 Year
  Sex: Female

DRUGS (15)
  1. TYSABRI [Suspect]
     Active Substance: NATALIZUMAB
     Indication: Multiple sclerosis
     Route: 065
     Dates: start: 20210216
  2. TYSABRI [Suspect]
     Active Substance: NATALIZUMAB
     Dosage: INFUSE INTO A VENOUS CATHETER - EVERY 4 WEEKS
     Route: 065
  3. TYSABRI [Suspect]
     Active Substance: NATALIZUMAB
     Dosage: INFUSED OVER ONE HOUR
     Route: 065
  4. LYRICA [Concomitant]
     Active Substance: PREGABALIN
     Indication: Product used for unknown indication
     Dosage: TAKE 150MG BY MOUTH 3 TIMES A DAY
     Route: 048
  5. LYRICA [Concomitant]
     Active Substance: PREGABALIN
     Route: 048
  6. ELIQUIS [Concomitant]
     Active Substance: APIXABAN
     Indication: Product used for unknown indication
     Route: 048
  7. NORTRIPTYLINE (PAMELOR) [Concomitant]
     Indication: Product used for unknown indication
     Dosage: - TAKE ONE IN THE AM AN TWO IN THE PM (PATIENT TAKING DIFFERENTLY: TAKE 10 MG BY MOUTH. TAKE ONE ...
     Route: 048
  8. LEXAPRO [Concomitant]
     Active Substance: ESCITALOPRAM OXALATE
     Indication: Product used for unknown indication
     Route: 048
  9. VALACYCLOVIR (VALTREX) [Concomitant]
     Indication: Product used for unknown indication
     Dosage: 1 MG EVERY DAY
     Route: 048
  10. cyanocobalamin (Vitamin b12) [Concomitant]
     Indication: Product used for unknown indication
     Route: 048
  11. omega-3 fatty acids (omega-3 fish oil PO) [Concomitant]
     Indication: Product used for unknown indication
     Route: 048
  12. Cholecalciferol (vitamin d) [Concomitant]
     Indication: Product used for unknown indication
     Route: 048
  13. hydrocodone-acitaminophen (NORCO) [Concomitant]
     Indication: Pain
     Dosage: - 5-325 MG. TAKE 2 TABLETS BY MOUTH. EVERY 6 HOURS FOR 14 DAYS AS NEEDED FOR PAIN
     Route: 048
  14. NEURONTIN [Concomitant]
     Active Substance: GABAPENTIN
     Indication: Product used for unknown indication
     Route: 048
  15. OXYCODONE-ACITAMINOPHEN (PERCOCET) [Concomitant]
     Indication: Pain
     Dosage: - 2.5-325 MG PER TABLET. TAKE 1 TAB BY MOUTH EVERY FOUR HOURS AS NEEDED FOR SEVERE PAIN.
     Route: 048

REACTIONS (3)
  - Death [Fatal]
  - Alopecia [Unknown]
  - Weight increased [Unknown]

NARRATIVE: CASE EVENT DATE: 20210101
